FAERS Safety Report 17145338 (Version 1)
Quarter: 2019Q4

REPORT INFORMATION
  Report Type: Spontaneous
  Country: DK (occurrence: DK)
  Receive Date: 20191212
  Receipt Date: 20191212
  Transmission Date: 20200122
  Serious: Yes (Other)
  Sender: FDA-Public Use
  Company Number: NVSC2019DK029812

PATIENT
  Age: 77 Year
  Sex: Male

DRUGS (7)
  1. ITRACONAZOLE. [Suspect]
     Active Substance: ITRACONAZOLE
     Indication: TRICHOPHYTOSIS
     Dosage: 3 DF
     Route: 062
     Dates: start: 2010
  2. TERBINAFINE. [Suspect]
     Active Substance: TERBINAFINE
     Indication: TRICHOPHYTOSIS
     Dosage: 3 DF
     Route: 061
     Dates: start: 2004
  3. TERBINAFINE. [Suspect]
     Active Substance: TERBINAFINE
     Dosage: UNK 3 COURSES OF TREATMENT (53 WEEKS)
     Route: 048
  4. AMOROLFINE [Suspect]
     Active Substance: AMOROLFINE
     Dosage: 3 UNK
     Route: 062
     Dates: start: 2010
  5. TERBINAFINE. [Suspect]
     Active Substance: TERBINAFINE
     Dosage: 3 DF
     Route: 062
     Dates: start: 2010
  6. AMOROLFINE [Suspect]
     Active Substance: AMOROLFINE
     Indication: TRICHOPHYTOSIS
     Dosage: 3 DF
     Route: 061
     Dates: start: 2004
  7. TERBINAFINE HYDROCHLORIDE. [Suspect]
     Active Substance: TERBINAFINE HYDROCHLORIDE
     Indication: TRICHOPHYTOSIS
     Dosage: UNK
     Route: 061
     Dates: start: 2004

REACTIONS (4)
  - Pathogen resistance [Unknown]
  - Treatment failure [Unknown]
  - Drug ineffective [Unknown]
  - Drug resistance [Unknown]
